FAERS Safety Report 14638114 (Version 1)
Quarter: 2018Q1

REPORT INFORMATION
  Report Type: Spontaneous
  Country: FR (occurrence: FR)
  Receive Date: 20180314
  Receipt Date: 20180314
  Transmission Date: 20180509
  Serious: Yes (Other)
  Sender: FDA-Public Use
  Company Number: FR-EMD SERONO-9014736

PATIENT
  Age: 48 Year
  Sex: Female

DRUGS (1)
  1. REBIF [Suspect]
     Active Substance: INTERFERON BETA-1A
     Indication: PRODUCT USED FOR UNKNOWN INDICATION
     Dates: start: 201509, end: 201706

REACTIONS (5)
  - Tooth disorder [Recovered/Resolved]
  - Procedural pain [Recovered/Resolved]
  - Tooth fracture [Recovered/Resolved]
  - Immunosuppression [Unknown]
  - Apical granuloma [Recovered/Resolved]

NARRATIVE: CASE EVENT DATE: 201603
